FAERS Safety Report 7336958-0 (Version None)
Quarter: 2011Q1

REPORT INFORMATION
  Report Type: 
  Country: None (occurrence: None)
  Receive Date: 20110228
  Receipt Date: 20110218
  Transmission Date: 20110831
  Serious: Yes (Other)
  Sender: FDA-Public Use
  Company Number: 2011SP003243

PATIENT
  Sex: Female

DRUGS (5)
  1. ZOLOFT [Concomitant]
  2. SAPHRIS [Suspect]
     Indication: SCHIZOPHRENIA
     Dosage: 5 MG;BID;SL
     Route: 060
     Dates: start: 20100312, end: 20110205
  3. SAPHRIS [Suspect]
     Indication: BIPOLAR DISORDER
     Dosage: 5 MG;BID;SL
     Route: 060
     Dates: start: 20100312, end: 20110205
  4. ATIVAN [Concomitant]
  5. COGENTIN [Concomitant]

REACTIONS (4)
  - MANIA [None]
  - ANXIETY [None]
  - HEADACHE [None]
  - ANGER [None]
